FAERS Safety Report 4349126-1 (Version None)
Quarter: 2004Q2

REPORT INFORMATION
  Report Type: 
  Country: None (occurrence: None)
  Receive Date: 20040427
  Receipt Date: 20040427
  Transmission Date: 20050107
  Serious: Yes (Life-Threatening)
  Sender: FDA-Public Use
  Company Number: None

PATIENT
  Sex: Female

DRUGS (1)
  1. LEPIRUDIN [Suspect]
     Indication: ANTICOAGULANT THERAPY
     Dosage: 17.6 MG IV PUSH
     Route: 042

REACTIONS (3)
  - ANAPHYLACTIC REACTION [None]
  - CARDIAC ARREST [None]
  - INFUSION RELATED REACTION [None]
